FAERS Safety Report 8161566-1 (Version None)
Quarter: 2012Q1

REPORT INFORMATION
  Report Type: 
  Country: None (occurrence: None)
  Receive Date: 20120224
  Receipt Date: 20120215
  Transmission Date: 20120608
  Serious: Yes (Other)
  Sender: FDA-Public Use
  Company Number: US-GENZYME-RENA-1001454

PATIENT

DRUGS (1)
  1. RENVELA [Suspect]
     Indication: HYPERPHOSPHATAEMIA
     Dosage: 7.2 G, QD
     Route: 048
     Dates: start: 20110501

REACTIONS (4)
  - DRUG DOSE OMISSION [None]
  - HIATUS HERNIA [None]
  - PRODUCT TASTE ABNORMAL [None]
  - FOOT OPERATION [None]
